FAERS Safety Report 15770200 (Version 2)
Quarter: 2019Q1

REPORT INFORMATION
  Report Type: Report from Study
  Country: RU (occurrence: RU)
  Receive Date: 20181228
  Receipt Date: 20190208
  Transmission Date: 20190417
  Serious: Yes (Hospitalization)
  Sender: FDA-Public Use
  Company Number: RU-REGENERON PHARMACEUTICALS, INC.-2018-49717

PATIENT

DRUGS (5)
  1. EYLEA [Suspect]
     Active Substance: AFLIBERCEPT
     Dosage: 50 ?L, ONCE, LEFT EYE (OS), FOLLOW-UP VISIT
     Route: 031
     Dates: start: 20180626, end: 20180626
  2. EYLEA [Suspect]
     Active Substance: AFLIBERCEPT
     Dosage: 50 ?L, ONCE, LEFT EYE (OS), FOLLOW-UP VISIT 2
     Route: 031
     Dates: start: 20180925, end: 20180925
  3. EYLEA [Suspect]
     Active Substance: AFLIBERCEPT
     Dosage: 50 ?L, ONCE, LEFT EYE (OS), FOLLOW-UP VISIT 1 (END OF OBSERVATION)
     Route: 031
     Dates: start: 20180731, end: 20180731
  4. EYLEA [Suspect]
     Active Substance: AFLIBERCEPT
     Dosage: 50 ?L, ONCE, LEFT EYE (OS), FOLLOW-UP VISIT 3. LAST INJECTION PRIOR TO THE EVENT.
     Route: 031
     Dates: start: 20181030, end: 20181030
  5. EYLEA [Suspect]
     Active Substance: AFLIBERCEPT
     Indication: DIABETIC RETINAL OEDEMA
     Dosage: 50 ?L, ONCE, LEFT EYE (OS), INITIAL VISIT
     Route: 031
     Dates: start: 20180522, end: 20180522

REACTIONS (1)
  - Cerebral circulatory failure [Recovering/Resolving]

NARRATIVE: CASE EVENT DATE: 20181109
